FAERS Safety Report 5897130-4 (Version None)
Quarter: 2008Q3

REPORT INFORMATION
  Report Type: 
  Country: None (occurrence: None)
  Receive Date: 20080924
  Receipt Date: 20080513
  Transmission Date: 20090109
  Serious: Yes (Disabling, Other)
  Sender: FDA-Public Use
  Company Number: US-ASTRAZENECA-2008UW09904

PATIENT
  Age: 13 Year
  Sex: Male

DRUGS (5)
  1. SEROQUEL [Suspect]
     Dosage: 25MG, 100MG HS
     Route: 048
  2. SEROQUEL [Suspect]
     Route: 048
  3. DEPAKOTE ER [Concomitant]
  4. VYVANSE [Concomitant]
  5. WELLBUTRIN [Concomitant]

REACTIONS (2)
  - EXTRAPYRAMIDAL DISORDER [None]
  - TARDIVE DYSKINESIA [None]
